FAERS Safety Report 9586463 (Version 2)
Quarter: 2013Q4

REPORT INFORMATION
  Report Type: Spontaneous
  Country: US (occurrence: None)
  Receive Date: 20131001
  Receipt Date: 20131108
  Transmission Date: 20140711
  Serious: Yes (Other)
  Sender: FDA-Public Use
  Company Number: ACO_35245_2013

PATIENT
  Age: 61 Year
  Sex: Male

DRUGS (7)
  1. AMPYRA [Suspect]
     Indication: GAIT DISTURBANCE
     Route: 048
     Dates: start: 201109
  2. LYRICA (PREGABALIN) [Concomitant]
  3. BACLOFEN [Concomitant]
  4. MULTIVITAMIN (VITAMIN NOS) [Concomitant]
  5. ASPIRIN (ACETYLSALICYLIC ACID) [Concomitant]
  6. LIPITOR (ATORVASTATIN CALCIUM) [Concomitant]
  7. AMANTADINE (AMANTADINE HYDROCHLORIDE) [Concomitant]

REACTIONS (5)
  - Neuromyelitis optica [None]
  - Decreased appetite [None]
  - Rash [None]
  - Dizziness [None]
  - Urinary tract infection [None]
